FAERS Safety Report 9257228 (Version 1)
Quarter: 2013Q2

REPORT INFORMATION
  Report Type: Spontaneous
  Country: RO (occurrence: None)
  Receive Date: 20130418
  Receipt Date: 20130418
  Transmission Date: 20140414
  Serious: Yes (Hospitalization, Other)
  Sender: FDA-Public Use
  Company Number: KAD201304-000457

PATIENT
  Age: 24 Year
  Sex: Male

DRUGS (3)
  1. RIBAVIRIN [Suspect]
     Indication: CHRONIC HEPATITIS C
  2. PEGINTERFERON ALFA-2A [Suspect]
     Indication: CHRONIC HEPATITIS C
  3. L-THYROXIN [Concomitant]

REACTIONS (5)
  - Type 1 diabetes mellitus [None]
  - Anaemia [None]
  - Leukopenia [None]
  - Insulin resistance [None]
  - Hypoglycaemia [None]
